FAERS Safety Report 9319310 (Version 1)
Quarter: 2013Q2

REPORT INFORMATION
  Report Type: Spontaneous
  Country: US (occurrence: None)
  Receive Date: 20130524
  Receipt Date: 20130524
  Transmission Date: 20140414
  Serious: Yes (Hospitalization)
  Sender: FDA-Public Use
  Company Number: CQC #19913

PATIENT
  Sex: Male

DRUGS (1)
  1. PURELL ADVANCED INSTANT HAND SANITIZER [Suspect]
     Indication: INFECTION PROPHYLAXIS
     Dosage: 047
     Dates: start: 20130429, end: 20130502

REACTIONS (3)
  - Loss of consciousness [None]
  - Intentional drug misuse [None]
  - Alcoholism [None]
